FAERS Safety Report 17888507 (Version 2)
Quarter: 2020Q3

REPORT INFORMATION
  Report Type: Spontaneous
  Country: US (occurrence: US)
  Receive Date: 20200612
  Receipt Date: 20200717
  Transmission Date: 20201103
  Serious: Yes (Hospitalization)
  Sender: FDA-Public Use
  Company Number: US-ROCHE-2619720

PATIENT
  Age: 75 Year
  Sex: Female

DRUGS (22)
  1. VITAMIN D3 [Concomitant]
     Active Substance: CHOLECALCIFEROL
  2. TUSSIN CF MAX [Concomitant]
     Active Substance: DEXTROMETHORPHAN HYDROBROMIDE\GUAIFENESIN\PHENYLEPHRINE HYDROCHLORIDE
  3. HYDROCODONE [Concomitant]
     Active Substance: HYDROCODONE
  4. ESBRIET [Suspect]
     Active Substance: PIRFENIDONE
     Indication: IDIOPATHIC PULMONARY FIBROSIS
     Route: 048
     Dates: start: 20190822
  5. ALBUTEROL. [Concomitant]
     Active Substance: ALBUTEROL
  6. LOSARTAN/HCT [Concomitant]
     Active Substance: HYDROCHLOROTHIAZIDE\LOSARTAN POTASSIUM
  7. NOVOLOG [Concomitant]
     Active Substance: INSULIN ASPART
  8. VITAMIN B12 [Concomitant]
     Active Substance: CYANOCOBALAMIN
  9. FLONASE [Concomitant]
     Active Substance: FLUTICASONE PROPIONATE
  10. GABAPENTIN. [Concomitant]
     Active Substance: GABAPENTIN
  11. CETIRIZINE [Concomitant]
     Active Substance: CETIRIZINE HYDROCHLORIDE
  12. FLOVENT [Concomitant]
     Active Substance: FLUTICASONE PROPIONATE
  13. JANUVIA [Concomitant]
     Active Substance: SITAGLIPTIN PHOSPHATE
  14. PROBIOTICA [Concomitant]
     Active Substance: PROBIOTICS NOS
  15. TYLENOL [Concomitant]
     Active Substance: ACETAMINOPHEN
  16. ATORVASTATINE [Concomitant]
     Active Substance: ATORVASTATIN
  17. OMEPRAZOLE. [Concomitant]
     Active Substance: OMEPRAZOLE
  18. PROAIR HFA [Concomitant]
     Active Substance: ALBUTEROL SULFATE
  19. BASAGLAR [Concomitant]
     Active Substance: INSULIN GLARGINE
  20. IMIPRAMINE [Concomitant]
     Active Substance: IMIPRAMINE
  21. VOLTAREN [Concomitant]
     Active Substance: DICLOFENAC SODIUM
  22. ACETAMINOPHEN. [Concomitant]
     Active Substance: ACETAMINOPHEN

REACTIONS (4)
  - Product dose omission issue [Unknown]
  - Nausea [Unknown]
  - Dyspnoea [Unknown]
  - Wrist fracture [Unknown]

NARRATIVE: CASE EVENT DATE: 20200609
